FAERS Safety Report 18731912 (Version 3)
Quarter: 2021Q1

REPORT INFORMATION
  Report Type: Spontaneous
  Country: US (occurrence: US)
  Receive Date: 20210112
  Receipt Date: 20210211
  Transmission Date: 20210419
  Serious: Yes (Other)
  Sender: FDA-Public Use
  Company Number: US-009507513-2101USA001968

PATIENT
  Age: 45 Year
  Sex: Female
  Weight: 63.5 kg

DRUGS (2)
  1. AVASTIN [Concomitant]
     Active Substance: BEVACIZUMAB
     Dosage: UNK
  2. KEYTRUDA [Suspect]
     Active Substance: PEMBROLIZUMAB
     Indication: ADENOCARCINOMA OF THE CERVIX
     Dosage: 200 MILLIGRAM EVERY 4 WEEKS
     Route: 042
     Dates: start: 20191111, end: 20210105

REACTIONS (19)
  - Malignant neoplasm progression [Unknown]
  - Decreased appetite [Unknown]
  - Red blood cell count abnormal [Unknown]
  - Haemoglobin abnormal [Unknown]
  - Tachycardia [Recovered/Resolved]
  - Haematocrit abnormal [Unknown]
  - Anxiety [Unknown]
  - Flushing [Recovered/Resolved]
  - Hypotension [Recovered/Resolved]
  - Vulvovaginal burning sensation [Unknown]
  - Vomiting [Unknown]
  - Diarrhoea [Unknown]
  - Hyperhidrosis [Recovered/Resolved]
  - Weight decreased [Unknown]
  - Nausea [Unknown]
  - Inappropriate schedule of product administration [Unknown]
  - Vital functions abnormal [Recovered/Resolved]
  - Mean cell volume abnormal [Unknown]
  - Mean cell haemoglobin concentration abnormal [Unknown]

NARRATIVE: CASE EVENT DATE: 20191111
